FAERS Safety Report 11004318 (Version 2)
Quarter: 2015Q2

REPORT INFORMATION
  Report Type: Spontaneous
  Country: TW (occurrence: None)
  Receive Date: 20150407
  Receipt Date: 20150413
  Transmission Date: 20150821
  Serious: Yes (Other)
  Sender: FDA-Public Use
  Company Number: TW-20150001

PATIENT
  Age: 65 Year
  Sex: Male

DRUGS (4)
  1. CEFAZOLINE (CEFAZOLIN SODIUM) [Concomitant]
  2. LIPIODOL [Suspect]
     Active Substance: ETHIODIZED OIL
     Indication: THERAPEUTIC EMBOLISATION
     Dosage: 20 ML (20 ML, 1 IN 1 D), INTRA-ARTERIAL
     Route: 013
     Dates: start: 20120622, end: 20120622
  3. GELFOAM [Concomitant]
     Active Substance: GELATIN\THROMBIN HUMAN
  4. DOXORUBICIN [Concomitant]
     Active Substance: DOXORUBICIN

REACTIONS (4)
  - Tumour lysis syndrome [None]
  - Haemodialysis [None]
  - Product use issue [None]
  - Acute kidney injury [None]

NARRATIVE: CASE EVENT DATE: 20120622
